FAERS Safety Report 22222753 (Version 2)
Quarter: 2023Q2

REPORT INFORMATION
  Report Type: Spontaneous
  Country: EG (occurrence: EG)
  Receive Date: 20230418
  Receipt Date: 20230503
  Transmission Date: 20230722
  Serious: Yes (Hospitalization, Other)
  Sender: FDA-Public Use
  Company Number: EG-SA-SAC20230417000963

PATIENT
  Age: 72 Year
  Sex: Female
  Weight: 90 kg

DRUGS (4)
  1. ENOXAPARIN SODIUM [Suspect]
     Active Substance: ENOXAPARIN SODIUM
     Indication: Thrombosis prophylaxis
     Dosage: 40 MG EVERY 12 HOURS Q12H
     Route: 058
     Dates: start: 20230213, end: 20230228
  2. PERFALGAN [Concomitant]
     Active Substance: ACETAMINOPHEN
     Dosage: PERFALGAN 1000 MG PER 100 ML
     Route: 042
  3. CONTROLOC [Concomitant]
     Active Substance: PANTOPRAZOLE SODIUM
     Route: 042
  4. PENTABURN [Concomitant]
     Indication: Thermal burn

REACTIONS (3)
  - Heparin-induced thrombocytopenia [Recovered/Resolved]
  - Thermal burn [Recovered/Resolved]
  - Platelet count decreased [Recovered/Resolved]

NARRATIVE: CASE EVENT DATE: 20230213
